FAERS Safety Report 6988735-8 (Version None)
Quarter: 2010Q3

REPORT INFORMATION
  Report Type: 
  Country: None (occurrence: None)
  Receive Date: 20100916
  Receipt Date: 20100910
  Transmission Date: 20110219
  Serious: Yes (Hospitalization)
  Sender: FDA-Public Use
  Company Number: US-RB-014508-10

PATIENT
  Age: 46 Year
  Sex: Female

DRUGS (1)
  1. SUBOXONE [Suspect]
     Indication: DRUG DEPENDENCE
     Route: 060
     Dates: start: 20100811

REACTIONS (17)
  - ABDOMINAL DISCOMFORT [None]
  - CELLULITIS [None]
  - CHILLS [None]
  - CONSTIPATION [None]
  - DIZZINESS [None]
  - DRUG DEPENDENCE [None]
  - DRUG WITHDRAWAL SYNDROME [None]
  - FOOD CRAVING [None]
  - GASTRIC DISORDER [None]
  - HOT FLUSH [None]
  - HYPERSOMNIA [None]
  - LETHARGY [None]
  - MEMORY IMPAIRMENT [None]
  - OXYGEN SATURATION DECREASED [None]
  - PAIN [None]
  - PHOTOPHOBIA [None]
  - PYREXIA [None]
